FAERS Safety Report 8035769-0 (Version None)
Quarter: 2011Q4

REPORT INFORMATION
  Report Type: 
  Country: None (occurrence: None)
  Receive Date: 20111228
  Receipt Date: 20111213
  Transmission Date: 20120403
  Serious: Yes (Other)
  Sender: FDA-Public Use
  Company Number: DSA_48579_2011

PATIENT
  Age: 51 Year
  Sex: Female

DRUGS (1)
  1. BUPROPION HCL [Suspect]
     Indication: DEPRESSION
     Dosage: 300; 150 MG PER DAY, FREQUENCY UNKNOWN, ORAL
     Route: 048

REACTIONS (7)
  - HALLUCINATION, VISUAL [None]
  - UNEVALUABLE EVENT [None]
  - ANHEDONIA [None]
  - ANXIETY [None]
  - IRRITABILITY [None]
  - INSOMNIA [None]
  - FEAR [None]
